FAERS Safety Report 5826679-5 (Version None)
Quarter: 2008Q3

REPORT INFORMATION
  Report Type: 
  Country: None (occurrence: None)
  Receive Date: 20080725
  Receipt Date: 20080721
  Transmission Date: 20090109
  Serious: Yes (Hospitalization)
  Sender: FDA-Public Use
  Company Number: 89491

PATIENT
  Age: 48 Year
  Sex: Female
  Weight: 92.5338 kg

DRUGS (4)
  1. BISACODYL LAXATIVE [Suspect]
     Dosage: 2 TABLETS/ ONCE/ ORAL
     Route: 048
     Dates: start: 20080711, end: 20080711
  2. BENACOR [Concomitant]
  3. JANUMET [Concomitant]
  4. PAXIL [Concomitant]

REACTIONS (7)
  - ABDOMINAL PAIN [None]
  - CHEST PAIN [None]
  - HYPERTENSION [None]
  - NAUSEA [None]
  - PANCREATIC DISORDER [None]
  - VOMITING [None]
  - WHITE BLOOD CELL COUNT INCREASED [None]
